FAERS Safety Report 18261748 (Version 1)
Quarter: 2020Q3

REPORT INFORMATION
  Report Type: Other
  Country: SG (occurrence: SG)
  Receive Date: 20200914
  Receipt Date: 20200914
  Transmission Date: 20201103
  Serious: Yes (Other)
  Sender: FDA-Public Use
  Company Number: SG-ROCHE-2672062

PATIENT
  Age: 46 Year
  Sex: Female

DRUGS (2)
  1. PERJETA [Suspect]
     Active Substance: PERTUZUMAB
     Indication: BREAST CANCER
     Route: 065
  2. HERCEPTIN [Suspect]
     Active Substance: TRASTUZUMAB
     Indication: BREAST CANCER
     Route: 058

REACTIONS (6)
  - Post procedural haemorrhage [Unknown]
  - Muscular weakness [Unknown]
  - Thrombosis [Unknown]
  - Full blood count decreased [Unknown]
  - Asthenia [Recovering/Resolving]
  - Blood pressure decreased [Unknown]
